FAERS Safety Report 8370684-4 (Version None)
Quarter: 2012Q1

REPORT INFORMATION
  Report Type: 
  Country: None (occurrence: None)
  Receive Date: 20120323
  Receipt Date: 20111221
  Transmission Date: 20120608
  Serious: Yes (Hospitalization, Other)
  Sender: FDA-Public Use
  Company Number: 163-21880-11093092

PATIENT
  Age: 82 Year
  Sex: Male
  Weight: 95.7 kg

DRUGS (3)
  1. REVLIMID [Suspect]
     Indication: MULTIPLE MYELOMA
     Dosage: 10 MG, 1 IN 1 D, PO : 10 MG, 1 IN 1 D, PO :5 MG, 1 IN 1 D, PO
     Route: 048
     Dates: start: 20110801
  2. REVLIMID [Suspect]
     Indication: MULTIPLE MYELOMA
     Dosage: 10 MG, 1 IN 1 D, PO : 10 MG, 1 IN 1 D, PO :5 MG, 1 IN 1 D, PO
     Route: 048
     Dates: start: 20100101, end: 20100702
  3. REVLIMID [Suspect]
     Indication: MULTIPLE MYELOMA
     Dosage: 10 MG, 1 IN 1 D, PO : 10 MG, 1 IN 1 D, PO :5 MG, 1 IN 1 D, PO
     Route: 048
     Dates: start: 20110406

REACTIONS (3)
  - ANXIETY [None]
  - EPISTAXIS [None]
  - THROMBOSIS [None]
